FAERS Safety Report 8570037 (Version 4)
Quarter: 2012Q4

REPORT INFORMATION
  Report Type: Report from Study
  Country: CO (occurrence: CO)
  Receive Date: 20120518
  Receipt Date: 20121015
  Transmission Date: 20130627
  Serious: Yes (Death, Hospitalization)
  Sender: FDA-Public Use
  Company Number: CO-ROCHE-1068683

PATIENT
  Age: 53 Year
  Sex: Male
  Weight: 58 kg

DRUGS (5)
  1. VEMURAFENIB [Suspect]
     Indication: METASTATIC MALIGNANT MELANOMA
     Dosage: The last dose prior to the SAE was 9 May 2012
     Route: 048
     Dates: start: 20120326
  2. MORPHINE SOLUTION [Concomitant]
     Route: 048
     Dates: start: 20120320, end: 20120509
  3. ACETAMINOPHEN [Concomitant]
     Route: 065
     Dates: start: 20120226, end: 20120508
  4. METOCLOPRAMIDE [Concomitant]
     Route: 065
     Dates: start: 20120424, end: 20120509
  5. SALBUTAMOL INHALER [Concomitant]
     Dosage: dose : 6 puffs
     Route: 065
     Dates: start: 20120428, end: 20120508

REACTIONS (2)
  - General physical health deterioration [Fatal]
  - Abdominal pain [Unknown]
